FAERS Safety Report 7080289-3 (Version None)
Quarter: 2010Q4

REPORT INFORMATION
  Report Type: 
  Country: None (occurrence: None)
  Receive Date: 20101022
  Receipt Date: 20101003
  Transmission Date: 20110411
  Serious: Yes (Hospitalization, Other)
  Sender: FDA-Public Use
  Company Number: 20109094

PATIENT

DRUGS (1)
  1. LIORESAL [Suspect]
     Indication: MUSCLE SPASTICITY
     Dosage: DAILY, INTRATHECAL
     Route: 037

REACTIONS (1)
  - DEVICE MALFUNCTION [None]
